FAERS Safety Report 9400400 (Version 2)
Quarter: 2013Q3

REPORT INFORMATION
  Report Type: Spontaneous
  Country: US (occurrence: US)
  Receive Date: 20130715
  Receipt Date: 20130806
  Transmission Date: 20140515
  Serious: Yes (Hospitalization)
  Sender: FDA-Public Use
  Company Number: US-WATSON-2013-12085

PATIENT
  Age: 51 Year
  Sex: Female
  Weight: 70 kg

DRUGS (2)
  1. HYDROCODONE BITARTRATE/ACETAMINOPHEN 10/325 MG (WATSON LABORATORIES) [Suspect]
     Indication: PAIN
     Dosage: ONE TAB EVERY FOUR HRS
     Route: 048
     Dates: start: 201304, end: 201306
  2. HYDROCODONE-APAP (WATSON LABORATORIES) [Suspect]
     Indication: PAIN
     Dosage: ONE TAB TWICE DAILY
     Route: 048
     Dates: start: 201211, end: 201211

REACTIONS (5)
  - Chest pain [Recovered/Resolved]
  - Electrocardiogram abnormal [Recovered/Resolved]
  - Rash [Recovered/Resolved]
  - Drug ineffective [Not Recovered/Not Resolved]
  - Swelling [Recovered/Resolved]
